FAERS Safety Report 22617489 (Version 1)
Quarter: 2023Q2

REPORT INFORMATION
  Report Type: Report from Study
  Country: ES (occurrence: ES)
  Receive Date: 20230620
  Receipt Date: 20230620
  Transmission Date: 20230722
  Serious: No
  Sender: FDA-Public Use
  Company Number: ES-PFM-2022-04180

PATIENT
  Age: 11 Year
  Sex: Female

DRUGS (4)
  1. PROPRANOLOL HYDROCHLORIDE [Suspect]
     Active Substance: PROPRANOLOL HYDROCHLORIDE
     Indication: Generalised resistance to thyroid hormone
     Dosage: UNK
     Route: 065
  2. PROPRANOLOL HYDROCHLORIDE [Suspect]
     Active Substance: PROPRANOLOL HYDROCHLORIDE
     Indication: Off label use
  3. MELATONIN [Suspect]
     Active Substance: MELATONIN
     Indication: Generalised resistance to thyroid hormone
     Dosage: UNK
     Route: 065
  4. 3,3^,5,5^-TETRAIODOTHYROACETIC ACID [Suspect]
     Active Substance: 3,3^,5,5^-TETRAIODOTHYROACETIC ACID
     Indication: Generalised resistance to thyroid hormone
     Dosage: UNK
     Route: 065

REACTIONS (3)
  - Off label use [Unknown]
  - Product use in unapproved indication [Unknown]
  - Product use issue [Unknown]
